FAERS Safety Report 8148825-3 (Version None)
Quarter: 2012Q1

REPORT INFORMATION
  Report Type: 
  Country: None (occurrence: None)
  Receive Date: 20120218
  Receipt Date: 20110718
  Transmission Date: 20120608
  Serious: No
  Sender: FDA-Public Use
  Company Number: US-ALLERGAN-1109697US

PATIENT
  Age: 44 Year
  Sex: Female
  Weight: 56.689 kg

DRUGS (2)
  1. BOTOX COSMETIC [Suspect]
     Dosage: UNK
     Dates: start: 20090415, end: 20090415
  2. BOTOX COSMETIC [Suspect]
     Indication: SKIN WRINKLING
     Dosage: UNK
     Dates: start: 20091122, end: 20091122

REACTIONS (11)
  - MENTAL IMPAIRMENT [None]
  - GENERAL PHYSICAL CONDITION ABNORMAL [None]
  - DYSPHONIA [None]
  - NOCTURNAL DYSPNOEA [None]
  - ASTHENIA [None]
  - WEIGHT INCREASED [None]
  - CONFUSIONAL STATE [None]
  - BONE PAIN [None]
  - INFLUENZA LIKE ILLNESS [None]
  - DEPRESSION [None]
  - SPEECH DISORDER [None]
